FAERS Safety Report 6619076-6 (Version None)
Quarter: 2010Q1

REPORT INFORMATION
  Report Type: 
  Country: None (occurrence: None)
  Receive Date: 20100308
  Receipt Date: 20100225
  Transmission Date: 20100710
  Serious: Yes (Hospitalization, Other)
  Sender: FDA-Public Use
  Company Number: DE-BAXTER-2009BH018925

PATIENT
  Age: 60 Year
  Sex: Male
  Weight: 75 kg

DRUGS (12)
  1. DIANEAL [Suspect]
     Indication: TUBULOINTERSTITIAL NEPHRITIS
     Route: 033
     Dates: start: 20000401, end: 20020101
  2. EXTRANEAL [Suspect]
     Indication: TUBULOINTERSTITIAL NEPHRITIS
     Route: 033
     Dates: start: 20020101, end: 20080101
  3. PHYSIOSOL IN PLASTIC CONTAINER [Suspect]
     Indication: TUBULOINTERSTITIAL NEPHRITIS
     Route: 033
     Dates: start: 20020101, end: 20080101
  4. HYDROCORTISON [Concomitant]
     Indication: RENAL TRANSPLANT
     Route: 065
  5. TACROLIMUS [Concomitant]
     Indication: RENAL TRANSPLANT
     Route: 065
     Dates: start: 20091101, end: 20100208
  6. HEPARIN [Concomitant]
     Indication: ANTICOAGULANT THERAPY
     Route: 065
     Dates: start: 20100101
  7. DECORTIN [Concomitant]
     Indication: RENAL TRANSPLANT
     Route: 048
     Dates: start: 20100109
  8. ARTERENOL [Concomitant]
     Indication: SHOCK HAEMORRHAGIC
     Route: 065
  9. LEVOTHYROXINE SODIUM [Concomitant]
     Indication: HYPOTHYROIDISM
     Route: 042
  10. SANDIMMUNE [Concomitant]
     Indication: RENAL TRANSPLANT
     Route: 065
     Dates: start: 20100208
  11. CELEXA [Concomitant]
     Route: 065
     Dates: start: 20100101
  12. SUCRALFATE [Concomitant]
     Route: 065
     Dates: start: 20091101

REACTIONS (16)
  - ABDOMINAL PAIN [None]
  - ABDOMINAL PAIN UPPER [None]
  - ABSCESS INTESTINAL [None]
  - FLANK PAIN [None]
  - FLATULENCE [None]
  - GASTROINTESTINAL OEDEMA [None]
  - HAEMATOMA INFECTION [None]
  - HAEMOGLOBIN DECREASED [None]
  - HYPOTONIA [None]
  - ILEUS [None]
  - INTRA-ABDOMINAL HAEMATOMA [None]
  - INTRA-ABDOMINAL HAEMORRHAGE [None]
  - PNEUMOTHORAX [None]
  - SCLEROSING ENCAPSULATING PERITONITIS [None]
  - TACHYCARDIA [None]
  - UROSEPSIS [None]
